FAERS Safety Report 19877420 (Version 1)
Quarter: 2021Q3

REPORT INFORMATION
  Report Type: Spontaneous
  Country: CN (occurrence: CN)
  Receive Date: 20210924
  Receipt Date: 20210924
  Transmission Date: 20211014
  Serious: Yes (Hospitalization)
  Sender: FDA-Public Use
  Company Number: CN-BAXTER-2021BAX026291

PATIENT
  Age: 49 Year
  Sex: Female
  Weight: 78 kg

DRUGS (8)
  1. 0.9% SODIUM CHLORIDE INJECTION [Suspect]
     Active Substance: SODIUM CHLORIDE
     Dosage: 1ST CYCLE DILUTION FOR DOCETAXEL
     Route: 041
  2. DUOPAFEI [Suspect]
     Active Substance: DOCETAXEL
     Indication: BREAST CANCER FEMALE
     Dosage: 1ST CYCLE
     Route: 041
  3. ENDOXAN [Suspect]
     Active Substance: CYCLOPHOSPHAMIDE
     Dosage: CYCLOPHOSPHAMIDE FOR INJECTION 1.1G + NS 100ML (2ND CYCLE)
     Route: 041
     Dates: start: 20191018, end: 20191018
  4. 0.9% SODIUM CHLORIDE INJECTION [Suspect]
     Active Substance: SODIUM CHLORIDE
     Dosage: 2ND CYCLE CYCLOPHOSPHAMIDE FOR INJECTION 1.1G + NS 100ML
     Route: 041
     Dates: start: 20191018, end: 20191018
  5. DUOPAFEI [Suspect]
     Active Substance: DOCETAXEL
     Dosage: DOCETAXEL INJECTION 130MG + NS 250ML (2ND CYCLE)
     Route: 041
     Dates: start: 20191018, end: 20191018
  6. ENDOXAN [Suspect]
     Active Substance: CYCLOPHOSPHAMIDE
     Indication: BREAST CANCER FEMALE
     Dosage: 1ST CYCLE
     Route: 041
  7. 0.9% SODIUM CHLORIDE INJECTION [Suspect]
     Active Substance: SODIUM CHLORIDE
     Indication: MEDICATION DILUTION
     Dosage: 1ST CYCLE DILUTION FOR CYCLOPHOSPHAMIDE
     Route: 041
  8. 0.9% SODIUM CHLORIDE INJECTION [Suspect]
     Active Substance: SODIUM CHLORIDE
     Dosage: 2ND CYCLE    DOCETAXEL INJECTION 130MG + NS 250ML
     Route: 041
     Dates: start: 20191018, end: 20191018

REACTIONS (1)
  - Myelosuppression [Recovering/Resolving]

NARRATIVE: CASE EVENT DATE: 20191023
